FAERS Safety Report 19196366 (Version 1)
Quarter: 2021Q2

REPORT INFORMATION
  Report Type: Other
  Country: GB (occurrence: GB)
  Receive Date: 20210429
  Receipt Date: 20210429
  Transmission Date: 20210717
  Serious: No
  Sender: FDA-Public Use
  Company Number: GB-LUPIN PHARMACEUTICALS INC.-2021-05524

PATIENT

DRUGS (1)
  1. SERTRALINE [Suspect]
     Active Substance: SERTRALINE HYDROCHLORIDE
     Indication: POSTPARTUM ANXIETY
     Dosage: 50 MILLIGRAM, QD
     Route: 063
     Dates: start: 20201130, end: 20201231

REACTIONS (2)
  - Rash [Unknown]
  - Exposure via breast milk [Unknown]
